FAERS Safety Report 10207719 (Version 1)
Quarter: 2014Q2

REPORT INFORMATION
  Report Type: Spontaneous
  Country: US (occurrence: US)
  Receive Date: 20140530
  Receipt Date: 20140530
  Transmission Date: 20141212
  Serious: No
  Sender: FDA-Public Use
  Company Number: US-GLAXOSMITHKLINE-A1056189A

PATIENT
  Age: 48 Year
  Sex: Female

DRUGS (5)
  1. VENTOLIN [Suspect]
     Indication: BRONCHITIS
     Dates: start: 20131231, end: 20140108
  2. AZITHROMYCIN [Concomitant]
  3. METHYLPREDNISOLONE [Concomitant]
  4. ALPRAZOLAM [Concomitant]
  5. VENTOLIN [Concomitant]
     Indication: PRODUCT USED FOR UNKNOWN INDICATION

REACTIONS (4)
  - Joint swelling [Not Recovered/Not Resolved]
  - Swollen tongue [Not Recovered/Not Resolved]
  - Aphonia [Not Recovered/Not Resolved]
  - Pharyngeal oedema [Not Recovered/Not Resolved]
